FAERS Safety Report 6444569-4 (Version None)
Quarter: 2009Q4

REPORT INFORMATION
  Report Type: 
  Country: None (occurrence: None)
  Receive Date: 20091118
  Receipt Date: 20090911
  Transmission Date: 20100525
  Serious: No
  Sender: FDA-Public Use
  Company Number: A0806909A

PATIENT
  Age: 57 Year
  Sex: Female

DRUGS (7)
  1. COREG CR [Suspect]
     Indication: HYPERTENSION
     Dosage: 20MG PER DAY
     Route: 048
     Dates: start: 20090902
  2. VITAMIN D [Concomitant]
  3. FISH OIL [Concomitant]
  4. VITAMIN B COMPLEX CAP [Concomitant]
  5. POTASSIUM CHLORIDE [Concomitant]
  6. CALCIUM [Concomitant]
  7. MAGNESIUM [Concomitant]

REACTIONS (5)
  - COUGH [None]
  - DRY MOUTH [None]
  - HEART RATE INCREASED [None]
  - INSOMNIA [None]
  - THROAT IRRITATION [None]
